FAERS Safety Report 19256864 (Version 2)
Quarter: 2021Q2

REPORT INFORMATION
  Report Type: Report from Study
  Country: CA (occurrence: CA)
  Receive Date: 20210514
  Receipt Date: 20210525
  Transmission Date: 20210717
  Serious: Yes (Hospitalization)
  Sender: FDA-Public Use
  Company Number: CA-ROCHE-2825853

PATIENT
  Age: 65 Year
  Sex: Male
  Weight: 74.5 kg

DRUGS (19)
  1. DILAUDID [Concomitant]
     Active Substance: HYDROMORPHONE HYDROCHLORIDE
     Route: 048
     Dates: start: 20210502
  2. BISACODYL. [Concomitant]
     Active Substance: BISACODYL
     Route: 048
     Dates: start: 20210503
  3. LACTULOSE. [Concomitant]
     Active Substance: LACTULOSE
     Route: 048
     Dates: start: 20210503
  4. MELATONIN [Concomitant]
     Active Substance: MELATONIN
     Indication: INSOMNIA
     Route: 048
     Dates: start: 202006, end: 20210420
  5. BISACODYL. [Concomitant]
     Active Substance: BISACODYL
     Route: 054
     Dates: start: 20210503
  6. ZANUBRUTINIB [Suspect]
     Active Substance: ZANUBRUTINIB
     Indication: FOLLICULAR LYMPHOMA
     Dosage: LAST DOSE OF ZANUBRUTINIB PRIOR TO SAE 01/MAY/2021
     Route: 048
     Dates: start: 20210225
  7. DILAUDID [Concomitant]
     Active Substance: HYDROMORPHONE HYDROCHLORIDE
     Indication: PAIN
     Route: 048
     Dates: start: 20210502
  8. DIPHTHERIA TETANUS PERTUSSIS VACCINE [Concomitant]
     Dates: start: 20210502, end: 20210502
  9. CEFADROXIL. [Concomitant]
     Active Substance: CEFADROXIL
     Route: 048
     Dates: start: 20210503
  10. CEFADROXIL. [Concomitant]
     Active Substance: CEFADROXIL
     Route: 048
     Dates: start: 20210503
  11. DIPHTHERIA VACCINE;PERTUSSIS VACCINE;TETANUS VACCINE [Concomitant]
     Active Substance: DIPHTHERIA AND TETANUS TOXOIDS AND PERTUSSIS VACCINE
     Route: 030
     Dates: start: 20210502, end: 20210502
  12. OBINUTUZUMAB. [Suspect]
     Active Substance: OBINUTUZUMAB
     Indication: FOLLICULAR LYMPHOMA
     Dosage: LAST DOSE OF OBINUTUZUMAB PRIOR TO SAE 20/APR/2021 (CYCLE 3)
     Route: 042
     Dates: start: 20210225
  13. CELEBREX [Concomitant]
     Active Substance: CELECOXIB
     Indication: INFLAMMATION
     Route: 048
     Dates: start: 20210303
  14. ENTRESTO [Concomitant]
     Active Substance: SACUBITRIL\VALSARTAN
     Route: 048
     Dates: start: 20210208, end: 20210501
  15. NAPROXEN. [Concomitant]
     Active Substance: NAPROXEN
     Indication: ARTHRALGIA
     Route: 048
     Dates: start: 2019, end: 20210420
  16. COVID?19 VACCINE NOS. [Concomitant]
     Active Substance: COVID-19 VACCINE NOS
     Route: 030
     Dates: start: 20210331, end: 20210331
  17. CELEBREX [Concomitant]
     Active Substance: CELECOXIB
     Route: 048
     Dates: start: 20210503
  18. TYLENOL [Concomitant]
     Active Substance: ACETAMINOPHEN
     Route: 048
  19. GLYCERINE [Concomitant]
     Active Substance: GLYCERIN
     Route: 054
     Dates: start: 20210503

REACTIONS (1)
  - Foot fracture [Recovering/Resolving]

NARRATIVE: CASE EVENT DATE: 20210501
